FAERS Safety Report 7469375-3 (Version None)
Quarter: 2011Q2

REPORT INFORMATION
  Report Type: 
  Country: None (occurrence: None)
  Receive Date: 20110510
  Receipt Date: 20100617
  Transmission Date: 20111010
  Serious: No
  Sender: FDA-Public Use
  Company Number: US-BAYER-201026924NA

PATIENT
  Age: 48 Year
  Sex: Female

DRUGS (1)
  1. MIRENA [Suspect]
     Indication: MENORRHAGIA
     Dosage: 20 ?G/D, CONT
     Route: 015
     Dates: start: 20100511, end: 20100604

REACTIONS (1)
  - DEVICE EXPULSION [None]
